FAERS Safety Report 6323708-X (Version None)
Quarter: 2009Q3

REPORT INFORMATION
  Report Type: 
  Country: None (occurrence: None)
  Receive Date: 20090824
  Receipt Date: 20090406
  Transmission Date: 20100115
  Serious: No
  Sender: FDA-Public Use
  Company Number: US-ABBOTT-09P-163-0566882-00

PATIENT
  Sex: Female
  Weight: 110.32 kg

DRUGS (2)
  1. NIASPAN [Suspect]
     Indication: BLOOD CHOLESTEROL INCREASED
     Route: 048
     Dates: start: 20070101, end: 20070101
  2. NIASPAN [Suspect]
     Route: 048
     Dates: start: 20090401, end: 20090404

REACTIONS (2)
  - ERYTHEMA [None]
  - PRURITUS [None]
